FAERS Safety Report 4535818-8 (Version None)
Quarter: 2004Q4

REPORT INFORMATION
  Report Type: 
  Country: None (occurrence: None)
  Receive Date: 20041223
  Receipt Date: 20040405
  Transmission Date: 20050328
  Serious: No
  Sender: FDA-Public Use
  Company Number: US-GLAXOSMITHKLINE-A0505963A

PATIENT
  Age: 38 Year
  Sex: Female

DRUGS (18)
  1. FLONASE [Suspect]
     Dosage: 2SPR THREE TIMES PER DAY
     Route: 045
  2. ATROVENT [Concomitant]
  3. ALBUTEROL [Concomitant]
  4. SINGULAIR [Concomitant]
  5. NEURONTIN [Concomitant]
  6. HYDROCODONE [Concomitant]
  7. TOPAMAX [Concomitant]
  8. AMBIEN [Concomitant]
  9. RISPERDAL [Concomitant]
  10. SEROQUEL [Concomitant]
  11. CLONAZEPAM [Concomitant]
  12. RANITIDINE [Concomitant]
  13. INDERAL [Concomitant]
  14. LIBRIUM [Concomitant]
  15. CONCERTA [Concomitant]
  16. FLEXERIL [Concomitant]
  17. NEXIUM [Concomitant]
  18. IBUPROFEN [Concomitant]

REACTIONS (2)
  - EPISTAXIS [None]
  - NASAL DRYNESS [None]
